FAERS Safety Report 12536986 (Version 2)
Quarter: 2016Q3

REPORT INFORMATION
  Report Type: Spontaneous
  Country: GB (occurrence: GB)
  Receive Date: 20160707
  Receipt Date: 20160715
  Transmission Date: 20161109
  Serious: Yes (Other)
  Sender: FDA-Public Use
  Company Number: PHHY2016GB088694

PATIENT

DRUGS (7)
  1. PAROXETINE HYDROCHLORIDE. [Suspect]
     Active Substance: PAROXETINE HYDROCHLORIDE
     Indication: DEPRESSION
     Dosage: 20 MG, QD
     Route: 048
     Dates: start: 19980624, end: 20050413
  2. SEROXAT [Suspect]
     Active Substance: PAROXETINE HYDROCHLORIDE
     Dosage: 30 MG, QD
     Route: 048
     Dates: start: 19990527
  3. PAROXETINE HYDROCHLORIDE. [Suspect]
     Active Substance: PAROXETINE HYDROCHLORIDE
     Dosage: UNK
     Route: 065
     Dates: start: 19990408
  4. PAROXETINE HYDROCHLORIDE. [Suspect]
     Active Substance: PAROXETINE HYDROCHLORIDE
     Dosage: 30 MG, QD
     Route: 048
     Dates: start: 19990419, end: 20160412
  5. SEROXAT [Suspect]
     Active Substance: PAROXETINE HYDROCHLORIDE
     Indication: DEPRESSION
     Dosage: 5 ML, QD
     Route: 048
     Dates: start: 20051104, end: 20051205
  6. SALBUTAMOL [Concomitant]
     Active Substance: ALBUTEROL
     Indication: PRODUCT USED FOR UNKNOWN INDICATION
     Route: 055
  7. BECLOMETASONE [Concomitant]
     Active Substance: BECLOMETHASONE DIPROPIONATE
     Indication: PRODUCT USED FOR UNKNOWN INDICATION
     Route: 055

REACTIONS (35)
  - Disability [Unknown]
  - Facial spasm [Unknown]
  - Dyspnoea [Unknown]
  - Aggression [Unknown]
  - Irritability [Unknown]
  - Malaise [Unknown]
  - Influenza like illness [Unknown]
  - Chills [Unknown]
  - Depressed mood [Unknown]
  - Tremor [Unknown]
  - Headache [Unknown]
  - Nausea [Unknown]
  - Sleep disorder [Unknown]
  - Treatment noncompliance [Unknown]
  - Obsessive-compulsive disorder [Unknown]
  - Paraesthesia [Unknown]
  - Paranoia [Unknown]
  - Anger [Unknown]
  - Hyperhidrosis [Unknown]
  - Poor quality sleep [Unknown]
  - Tension [Unknown]
  - Dizziness [Unknown]
  - Mood swings [Unknown]
  - Crying [Unknown]
  - Decreased appetite [Unknown]
  - Insomnia [Unknown]
  - Intentional self-injury [Unknown]
  - Night sweats [Unknown]
  - Muscular weakness [Unknown]
  - Feeling abnormal [Unknown]
  - Suicidal ideation [Unknown]
  - Anxiety [Unknown]
  - Nightmare [Unknown]
  - Depression [Unknown]
  - Drug withdrawal syndrome [Unknown]

NARRATIVE: CASE EVENT DATE: 20111115
